FAERS Safety Report 18285644 (Version 2)
Quarter: 2020Q3

REPORT INFORMATION
  Report Type: Spontaneous
  Country: US (occurrence: US)
  Receive Date: 20200918
  Receipt Date: 20200923
  Transmission Date: 20201103
  Serious: No
  Sender: FDA-Public Use
  Company Number: US-TRIS PHARMA, INC.-20US009079

PATIENT

DRUGS (1)
  1. PROMETHAZINE HCL + CODEINE PHOSPHATE [Suspect]
     Active Substance: CODEINE PHOSPHATE\PROMETHAZINE HYDROCHLORIDE
     Indication: COUGH
     Dosage: UNK, SINGLE (ONE TIME USE)
     Route: 048

REACTIONS (4)
  - Contraindicated product administered [Unknown]
  - Head discomfort [Recovered/Resolved]
  - Allergic reaction to excipient [Unknown]
  - Product dispensing error [Unknown]
